FAERS Safety Report 16304108 (Version 1)
Quarter: 2019Q2

REPORT INFORMATION
  Report Type: Spontaneous
  Country: US (occurrence: US)
  Receive Date: 20190513
  Receipt Date: 20190513
  Transmission Date: 20190711
  Serious: No
  Sender: FDA-Public Use
  Company Number: US-HTU-2019US018791

PATIENT
  Sex: Male

DRUGS (1)
  1. VALCHLOR [Suspect]
     Active Substance: MECHLORETHAMINE
     Indication: NON-HODGKIN^S LYMPHOMA
     Dosage: UNK, QD
     Route: 061

REACTIONS (3)
  - Neuralgia [Unknown]
  - Impaired work ability [Unknown]
  - Off label use [Unknown]
